FAERS Safety Report 10285769 (Version 1)
Quarter: 2014Q3

REPORT INFORMATION
  Report Type: Spontaneous
  Country: US (occurrence: US)
  Receive Date: 20140709
  Receipt Date: 20140709
  Transmission Date: 20150326
  Serious: No
  Sender: FDA-Public Use
  Company Number: US-009507513-1407USA003957

PATIENT
  Sex: Female

DRUGS (1)
  1. NUVARING [Suspect]
     Active Substance: ETHINYL ESTRADIOL\ETONOGESTREL
     Dosage: DOSE/FREQUENCY-1 RING/4 WEEKS IN

REACTIONS (4)
  - Incorrect drug administration duration [Unknown]
  - Amenorrhoea [Unknown]
  - Drug prescribing error [Unknown]
  - Device expulsion [Unknown]
